FAERS Safety Report 4291324-X (Version None)
Quarter: 2004Q1

REPORT INFORMATION
  Report Type: 
  Country: None (occurrence: None)
  Receive Date: 20040211
  Receipt Date: 20031211
  Transmission Date: 20041129
  Serious: No
  Sender: FDA-Public Use
  Company Number: US-GLAXOSMITHKLINE-A0442785A

PATIENT
  Age: 25 Year
  Sex: Male

DRUGS (3)
  1. PAXIL [Suspect]
     Indication: DEPRESSION
     Dosage: 40MG PER DAY
     Route: 048
     Dates: start: 20020101, end: 20031206
  2. ACCUTANE [Concomitant]
  3. CENTRUM MULTIVITAMIN [Concomitant]

REACTIONS (10)
  - DIZZINESS [None]
  - DRUG WITHDRAWAL SYNDROME [None]
  - FEELING HOT AND COLD [None]
  - INFLUENZA LIKE ILLNESS [None]
  - ODYNOPHAGIA [None]
  - PAIN [None]
  - PARAESTHESIA [None]
  - PHARYNGOLARYNGEAL PAIN [None]
  - SOCIAL PHOBIA [None]
  - TREMOR [None]
